FAERS Safety Report 24460472 (Version 1)
Quarter: 2024Q4

REPORT INFORMATION
  Report Type: Report from Study
  Country: ZA (occurrence: ZA)
  Receive Date: 20241018
  Receipt Date: 20241018
  Transmission Date: 20250115
  Serious: No
  Sender: ROCHE
  Company Number: ZA-ROCHE-3536510

PATIENT
  Sex: Female

DRUGS (3)
  1. MABTHERA [Suspect]
     Active Substance: RITUXIMAB
     Indication: Rheumatoid arthritis
     Dosage: ON DAY 0 AND AGAIN ON DAY 14 (EVERY 6 MONTHS)
     Route: 041
  2. MABTHERA [Suspect]
     Active Substance: RITUXIMAB
     Dosage: THERE AFTER EVERY 6 MONTHS
     Route: 041
  3. RITUXIMAB [Suspect]
     Active Substance: RITUXIMAB
     Indication: Rheumatoid arthritis
     Dosage: THERE AFTER EVERY 6MONTHS
     Route: 041

REACTIONS (2)
  - Product dose omission in error [Unknown]
  - No adverse event [Unknown]
